FAERS Safety Report 8479804-4 (Version None)
Quarter: 2012Q2

REPORT INFORMATION
  Report Type: 
  Country: None (occurrence: None)
  Receive Date: 20120629
  Receipt Date: 20120621
  Transmission Date: 20120825
  Serious: Yes (Other)
  Sender: FDA-Public Use
  Company Number: US-ABBOTT-12P-163-0948809-00

PATIENT
  Sex: Female

DRUGS (1)
  1. HUMIRA [Suspect]
     Indication: RHEUMATOID ARTHRITIS
     Dates: start: 20120612

REACTIONS (6)
  - ROTATOR CUFF SYNDROME [None]
  - LIGAMENT SPRAIN [None]
  - FATIGUE [None]
  - INJECTION SITE PAIN [None]
  - FALL [None]
  - INJECTION SITE ERYTHEMA [None]
